FAERS Safety Report 13360462 (Version 1)
Quarter: 2017Q1

REPORT INFORMATION
  Report Type: Other
  Country: GB (occurrence: GB)
  Receive Date: 20170322
  Receipt Date: 20170322
  Transmission Date: 20170429
  Serious: Yes (Hospitalization, Other)
  Sender: FDA-Public Use
  Company Number: GB-ACELLA PHARMACEUTICALS, LLC-1064525

PATIENT
  Age: 29 Year
  Sex: Male

DRUGS (1)
  1. BROMPHENIRAMINE MAL, PSEUDOEPHEDRINE HCL, AND DEXTROMETHORPHAN HBR [Suspect]
     Active Substance: BROMPHENIRAMINE MALEATE\DEXTROMETHORPHAN HYDROBROMIDE\PSEUDOEPHEDRINE HYDROCHLORIDE
     Route: 048

REACTIONS (4)
  - Cough [Recovered/Resolved]
  - Acute generalised exanthematous pustulosis [Recovered/Resolved with Sequelae]
  - Pyrexia [Recovered/Resolved]
  - Rhinitis [Recovered/Resolved]
